FAERS Safety Report 8558561-7 (Version None)
Quarter: 2012Q3

REPORT INFORMATION
  Report Type: 
  Country: None (occurrence: None)
  Receive Date: 20120801
  Receipt Date: 20120727
  Transmission Date: 20120928
  Serious: Yes (Death, Hospitalization, Other)
  Sender: FDA-Public Use
  Company Number: US-FRI-1000029239

PATIENT
  Sex: Male

DRUGS (13)
  1. ALBUTEROL [Concomitant]
  2. ASCORBIC ACID [Concomitant]
  3. VITAMIN D [Concomitant]
  4. LEVAQUIN [Suspect]
     Indication: BRONCHITIS
     Dates: start: 20120301, end: 20120301
  5. MULTI-VITAMINS [Concomitant]
  6. SPIRIVA [Concomitant]
  7. FORADIL [Concomitant]
  8. DALIRESP [Suspect]
     Indication: CHRONIC OBSTRUCTIVE PULMONARY DISEASE
     Dosage: 500 MCG
     Route: 048
     Dates: start: 20111128
  9. SIMVASTATIN [Suspect]
     Indication: BLOOD CHOLESTEROL INCREASED
     Dosage: 10 MG
     Dates: end: 20120401
  10. ASMANEX TWISTHALER [Concomitant]
     Dosage: 220 MCG
  11. VITAMIN E [Concomitant]
  12. ASPIRIN [Concomitant]
  13. ALLOPURINOL [Concomitant]
     Indication: NEPHROLITHIASIS
     Dosage: 300 MG

REACTIONS (20)
  - FALL [None]
  - ERUCTATION [None]
  - DYSGEUSIA [None]
  - ASTHENIA [None]
  - BRONCHITIS [None]
  - FREQUENT BOWEL MOVEMENTS [None]
  - AGEUSIA [None]
  - SWELLING FACE [None]
  - DRY MOUTH [None]
  - OEDEMA PERIPHERAL [None]
  - GASTROOESOPHAGEAL REFLUX DISEASE [None]
  - ATRIAL FIBRILLATION [None]
  - NAUSEA [None]
  - DECREASED APPETITE [None]
  - COMPRESSION FRACTURE [None]
  - PNEUMONIA [None]
  - SEPSIS [None]
  - TREMOR [None]
  - MUSCULAR WEAKNESS [None]
  - WEIGHT DECREASED [None]
